FAERS Safety Report 13109057 (Version 1)
Quarter: 2017Q1

REPORT INFORMATION
  Report Type: Spontaneous
  Country: US (occurrence: US)
  Receive Date: 20170112
  Receipt Date: 20170112
  Transmission Date: 20170428
  Serious: Yes (Hospitalization)
  Sender: FDA-Public Use
  Company Number: None

PATIENT
  Age: 30 Year
  Sex: Male
  Weight: 100.5 kg

DRUGS (1)
  1. LURASIDONE [Suspect]
     Active Substance: LURASIDONE
     Indication: SCHIZOAFFECTIVE DISORDER
     Dosage: 1 TB EVERY DAY PO
     Route: 048
     Dates: start: 20160714, end: 20160730

REACTIONS (3)
  - Muscle spasms [None]
  - Suicidal ideation [None]
  - Hyperhidrosis [None]

NARRATIVE: CASE EVENT DATE: 20160727
